FAERS Safety Report 6220553-0 (Version None)
Quarter: 2009Q2

REPORT INFORMATION
  Report Type: 
  Country: None (occurrence: None)
  Receive Date: 20090610
  Receipt Date: 20090602
  Transmission Date: 20091009
  Serious: Yes (Hospitalization, Other)
  Sender: FDA-Public Use
  Company Number: US-AMGEN-QUU343360

PATIENT
  Sex: Female
  Weight: 50.8 kg

DRUGS (16)
  1. EPOGEN [Suspect]
     Indication: DIALYSIS
     Route: 058
     Dates: start: 20070323, end: 20090211
  2. DILANTIN [Suspect]
     Dates: end: 20090416
  3. UNSPECIFIED MEDICATION [Concomitant]
     Dates: start: 20070101
  4. REQUIP [Concomitant]
  5. NORVASC [Concomitant]
  6. RENAGEL [Concomitant]
  7. LOTENSIN [Concomitant]
  8. LABETALOL HCL [Concomitant]
  9. ZONEGRAN [Concomitant]
     Dates: start: 20090416
  10. FOLATE SODIUM [Concomitant]
  11. CLONIDINE HCL [Concomitant]
  12. TRAZODONE HCL [Concomitant]
  13. CARVEDILOL [Concomitant]
  14. FOLIC ACID [Concomitant]
  15. ZEMPLAR [Concomitant]
  16. CINACALCET HYDROCHLORIDE [Concomitant]

REACTIONS (6)
  - ANTI-ERYTHROPOIETIN ANTIBODY POSITIVE [None]
  - APLASIA PURE RED CELL [None]
  - DYSFUNCTIONAL UTERINE BLEEDING [None]
  - GASTRITIS [None]
  - HAEMORRHOIDS [None]
  - NEUTROPHIL COUNT DECREASED [None]
